FAERS Safety Report 11723771 (Version 1)
Quarter: 2015Q4

REPORT INFORMATION
  Report Type: Spontaneous
  Country: US (occurrence: US)
  Receive Date: 20151111
  Receipt Date: 20151111
  Transmission Date: 20160304
  Serious: No
  Sender: FDA-Public Use
  Company Number: US-009507513-1510USA013722

PATIENT
  Age: 67 Year
  Sex: Female

DRUGS (1)
  1. NOXAFIL [Suspect]
     Active Substance: POSACONAZOLE
     Indication: OESOPHAGEAL CANDIDIASIS
     Dosage: 400 MG, BID
     Route: 048
     Dates: start: 20151020

REACTIONS (2)
  - Product solubility abnormal [Unknown]
  - Incorrect drug dosage form administered [Unknown]

NARRATIVE: CASE EVENT DATE: 20151020
